FAERS Safety Report 24762830 (Version 1)
Quarter: 2024Q4

REPORT INFORMATION
  Report Type: Spontaneous
  Country: US (occurrence: US)
  Receive Date: 20241222
  Receipt Date: 20241222
  Transmission Date: 20250115
  Serious: No
  Sender: GE HEALTHCARE
  Company Number: US-GE HEALTHCARE-2024CSU012313

PATIENT
  Age: 51 Year
  Sex: Male

DRUGS (1)
  1. CLARISCAN [Suspect]
     Active Substance: GADOTERATE MEGLUMINE
     Indication: Diagnostic procedure
     Dosage: 18 ML, TOTAL
     Route: 065

REACTIONS (2)
  - Wheezing [Unknown]
  - Urticaria [Unknown]

NARRATIVE: CASE EVENT DATE: 20240915
